FAERS Safety Report 14695569 (Version 1)
Quarter: 2018Q1

REPORT INFORMATION
  Report Type: Spontaneous
  Country: DE (occurrence: DE)
  Receive Date: 20180329
  Receipt Date: 20180329
  Transmission Date: 20180509
  Serious: Yes (Other)
  Sender: FDA-Public Use
  Company Number: DE-TEVA-2018-DE-859757

PATIENT
  Age: 60 Year
  Sex: Male
  Weight: 85 kg

DRUGS (2)
  1. ATORVASTATIN-RATIOPHARM 30 MG FILMTABLETTEN [Suspect]
     Active Substance: ATORVASTATIN
     Indication: HYPERCHOLESTEROLAEMIA
     Dosage: TOTAL: 2 TABLETS
     Route: 048
  2. HERZ ASS [Concomitant]
     Indication: HYPERTENSION
     Route: 048

REACTIONS (5)
  - Angina pectoris [Recovered/Resolved]
  - Muscle spasms [Unknown]
  - Cardiac discomfort [Recovered/Resolved]
  - Headache [Unknown]
  - Drug intolerance [Unknown]
